FAERS Safety Report 21349579 (Version 1)
Quarter: 2022Q3

REPORT INFORMATION
  Report Type: Spontaneous
  Country: US (occurrence: None)
  Receive Date: 20220916
  Receipt Date: 20220916
  Transmission Date: 20221027
  Serious: Yes (Hospitalization)
  Sender: FDA-Public Use
  Company Number: None

PATIENT
  Age: 61 Year
  Sex: Male

DRUGS (1)
  1. AUBAGIO [Suspect]
     Active Substance: TERIFLUNOMIDE
     Indication: Multiple sclerosis
     Dosage: FREQUENCY : DAILY;?
     Route: 048
     Dates: start: 20220321

REACTIONS (6)
  - Gastric ulcer [None]
  - Weight increased [None]
  - Hepatic cirrhosis [None]
  - Fluid retention [None]
  - Fall [None]
  - Biopsy [None]

NARRATIVE: CASE EVENT DATE: 20220916
